FAERS Safety Report 7512594-8 (Version None)
Quarter: 2011Q2

REPORT INFORMATION
  Report Type: 
  Country: None (occurrence: None)
  Receive Date: 20110520
  Receipt Date: 20110516
  Transmission Date: 20111010
  Serious: Yes (Life-Threatening, Disabling)
  Sender: FDA-Public Use
  Company Number: 2011SP022400

PATIENT
  Age: 9 Year
  Sex: Male

DRUGS (4)
  1. FLOVENT [Concomitant]
  2. SINGULAIR [Concomitant]
  3. VERAMYST [Concomitant]
  4. ASMANEX TWISTHALER [Suspect]
     Indication: ASTHMA
     Dosage: 110 MCG; QD; INH
     Route: 055
     Dates: start: 20110301, end: 20110515

REACTIONS (7)
  - REACTION TO DRUG EXCIPIENTS [None]
  - SKIN WARM [None]
  - RASH GENERALISED [None]
  - SKIN SWELLING [None]
  - PAIN IN EXTREMITY [None]
  - SCREAMING [None]
  - PYREXIA [None]
